FAERS Safety Report 5516858-9 (Version None)
Quarter: 2007Q4

REPORT INFORMATION
  Report Type: 
  Country: None (occurrence: None)
  Receive Date: 20071114
  Receipt Date: 20071031
  Transmission Date: 20080405
  Serious: Yes (Other)
  Sender: FDA-Public Use
  Company Number: US-AMGEN-US250958

PATIENT
  Sex: Female
  Weight: 59 kg

DRUGS (9)
  1. PROCRIT [Suspect]
     Indication: DRUG USE FOR UNKNOWN INDICATION
  2. COSOPT [Concomitant]
  3. LUMIGAN [Concomitant]
  4. ALTACE [Concomitant]
  5. LANOXIN [Concomitant]
  6. SYNTHROID [Concomitant]
  7. TRICOR [Concomitant]
  8. ATENOLOL [Concomitant]
     Dates: end: 20071024
  9. FISH OIL [Concomitant]
     Route: 048

REACTIONS (3)
  - EYE HAEMORRHAGE [None]
  - GASTROENTERITIS VIRAL [None]
  - WEIGHT DECREASED [None]
